FAERS Safety Report 9921823 (Version 1)
Quarter: 2014Q1

REPORT INFORMATION
  Report Type: Spontaneous
  Country: US (occurrence: US)
  Receive Date: 20140225
  Receipt Date: 20140225
  Transmission Date: 20141002
  Serious: No
  Sender: FDA-Public Use
  Company Number: US-BAYER-2014-028914

PATIENT
  Age: 82 Year
  Sex: Female
  Weight: 57 kg

DRUGS (1)
  1. ALEVE TABLET [Suspect]
     Indication: ANALGESIC THERAPY
     Dosage: 1-2 TABLETS, BID
     Route: 048
     Dates: start: 2012

REACTIONS (2)
  - Incorrect drug administration duration [None]
  - Extra dose administered [None]
